FAERS Safety Report 15802627 (Version 1)
Quarter: 2019Q1

REPORT INFORMATION
  Report Type: Report from Study
  Country: None (occurrence: US)
  Receive Date: 20190109
  Receipt Date: 20190109
  Transmission Date: 20190417
  Serious: Yes (Hospitalization)
  Sender: FDA-Public Use
  Company Number: US-ABBVIE-19S-163-2609429-00

PATIENT
  Age: 83 Year
  Sex: Male

DRUGS (2)
  1. IBUPROFEN. [Concomitant]
     Active Substance: IBUPROFEN
     Indication: PAIN
  2. CREON [Suspect]
     Active Substance: PANCRELIPASE AMYLASE\PANCRELIPASE LIPASE\PANCRELIPASE PROTEASE
     Indication: PANCREATIC CARCINOMA
     Dosage: 2 CAPSULES WITH EACH MEAL AND 1 CAPSULE WITH SNACKS
     Route: 048
     Dates: start: 201704

REACTIONS (16)
  - Bile duct stenosis [Recovered/Resolved]
  - Pancreatic disorder [Unknown]
  - Dyspepsia [Unknown]
  - Abdominal distension [Not Recovered/Not Resolved]
  - Nasal congestion [Not Recovered/Not Resolved]
  - Weight decreased [Not Recovered/Not Resolved]
  - Dysuria [Not Recovered/Not Resolved]
  - Duodenitis [Recovered/Resolved]
  - Flatulence [Not Recovered/Not Resolved]
  - Anorectal discomfort [Recovered/Resolved]
  - Hepatic enzyme increased [Recovering/Resolving]
  - Constipation [Not Recovered/Not Resolved]
  - Chromaturia [Recovered/Resolved]
  - Nausea [Not Recovered/Not Resolved]
  - Gastric disorder [Unknown]
  - Abdominal pain [Not Recovered/Not Resolved]

NARRATIVE: CASE EVENT DATE: 201809
